FAERS Safety Report 9243337 (Version 2)
Quarter: 2013Q4

REPORT INFORMATION
  Report Type: Spontaneous
  Country: GB (occurrence: GB)
  Receive Date: 20130420
  Receipt Date: 20131108
  Transmission Date: 20140711
  Serious: Yes (Disabling, Other)
  Sender: FDA-Public Use
  Company Number: GB-B.I. PHARMACEUTICALS,INC./RIDGEFIELD-2013-UK-00878UK

PATIENT
  Age: 75 Year
  Sex: 0

DRUGS (19)
  1. PRADAXA [Suspect]
     Indication: ATRIAL FIBRILLATION
     Dosage: 220 MG
     Route: 048
     Dates: start: 20120903
  2. PRADAXA [Suspect]
     Indication: CEREBROVASCULAR ACCIDENT
  3. BECLOMETASONE [Concomitant]
     Dosage: 100 MCG
     Route: 055
  4. BISOPROLOL [Concomitant]
     Dosage: 2.5 MG
     Route: 048
  5. BUMETANIDE [Concomitant]
     Indication: GRAVITATIONAL OEDEMA
     Dosage: 2 MG
     Route: 048
  6. BUMETANIDE [Concomitant]
     Indication: PAIN IN EXTREMITY
  7. CANESTEN [Concomitant]
     Dosage: 2 ANZ
     Dates: start: 20130215
  8. CETRABEN EMOLLIENT CREAM [Concomitant]
     Dosage: ROUTE: CUTANEOUS USE
     Dates: start: 20130212
  9. CO-AMOXICLAV [Concomitant]
     Dosage: 3 ANZ
  10. COLCHICINE [Concomitant]
     Dosage: 1000 MCG
     Route: 048
  11. DIGOXIN [Concomitant]
     Indication: ATRIAL FIBRILLATION
     Dosage: 125 MCG
     Route: 048
  12. DIGOXIN [Concomitant]
     Indication: WHEEZING
  13. E45 ITCH RELIEF [Concomitant]
     Dosage: ROUTE: CUTANEOUS USE
     Dates: start: 20120809
  14. LANSOPRAZOLE [Concomitant]
     Dosage: 60 MG
     Route: 048
  15. METFORMIN [Concomitant]
     Dosage: 500 MG
     Route: 048
  16. RAMIPRIL [Concomitant]
     Dosage: 1.25 MG
     Route: 048
  17. SIMVASTATIN [Concomitant]
     Indication: CEREBRAL INFARCTION
     Dosage: 40 MG
     Route: 048
  18. SPIRONOLACTONE [Concomitant]
     Dosage: 25 MG
     Route: 048
  19. VENTOLIN [Concomitant]
     Route: 055

REACTIONS (3)
  - Cerebrovascular accident [Not Recovered/Not Resolved]
  - Hypoaesthesia [Not Recovered/Not Resolved]
  - Hemiparesis [Not Recovered/Not Resolved]
